FAERS Safety Report 7876388-6 (Version None)
Quarter: 2011Q4

REPORT INFORMATION
  Report Type: 
  Country: None (occurrence: None)
  Receive Date: 20111031
  Receipt Date: 20111025
  Transmission Date: 20120403
  Serious: Yes (Hospitalization)
  Sender: FDA-Public Use
  Company Number: JP-ABBOTT-11P-087-0840512-00

PATIENT
  Sex: Female

DRUGS (5)
  1. METHOTREXATE [Concomitant]
     Dates: start: 20091222, end: 20110628
  2. HUMIRA [Suspect]
     Dates: start: 20110315, end: 20110628
  3. METHOTREXATE [Concomitant]
     Indication: RHEUMATOID ARTHRITIS
     Route: 048
     Dates: start: 20081125, end: 20091221
  4. FOLIC ACID [Concomitant]
     Indication: RHEUMATOID ARTHRITIS
     Route: 048
     Dates: start: 20081125, end: 20110628
  5. HUMIRA [Suspect]
     Indication: RHEUMATOID ARTHRITIS
     Route: 058
     Dates: start: 20090331, end: 20110104

REACTIONS (7)
  - ENTEROCOLITIS [None]
  - PLEURAL EFFUSION [None]
  - SEPSIS [None]
  - PYREXIA [None]
  - SALMONELLOSIS [None]
  - AORTIC ANEURYSM RUPTURE [None]
  - C-REACTIVE PROTEIN INCREASED [None]
